FAERS Safety Report 5446121-6 (Version None)
Quarter: 2007Q3

REPORT INFORMATION
  Report Type: 
  Country: None (occurrence: None)
  Receive Date: 20070907
  Receipt Date: 20070829
  Transmission Date: 20080115
  Serious: Yes (Other)
  Sender: FDA-Public Use
  Company Number: PL-AMGEN-UK239386

PATIENT
  Sex: Female
  Weight: 74 kg

DRUGS (4)
  1. ARANESP [Suspect]
     Indication: DIALYSIS
     Route: 042
     Dates: start: 20060517, end: 20070725
  2. CALCIUM CARBONATE [Concomitant]
     Route: 048
     Dates: start: 20070411, end: 20070801
  3. FOLIC ACID [Concomitant]
     Route: 048
     Dates: start: 20070103, end: 20070801
  4. ZINC SULFATE [Concomitant]
     Route: 048
     Dates: start: 20070103, end: 20070520

REACTIONS (1)
  - CAESAREAN SECTION [None]
